FAERS Safety Report 7383944-0 (Version None)
Quarter: 2011Q1

REPORT INFORMATION
  Report Type: 
  Country: None (occurrence: None)
  Receive Date: 20110330
  Receipt Date: 20110322
  Transmission Date: 20110831
  Serious: Yes (Hospitalization)
  Sender: FDA-Public Use
  Company Number: FR-PFIZER INC-2011065249

PATIENT
  Age: 58 Year
  Sex: Female

DRUGS (5)
  1. ZITHROMAX [Suspect]
     Indication: ODYNOPHAGIA
     Dosage: UNK
     Route: 048
     Dates: start: 20110114, end: 20110116
  2. ACTONEL [Concomitant]
     Dosage: 75 MG TWICE MONTHLY
  3. LARIAM [Suspect]
     Indication: MALARIA PROPHYLAXIS
     Dosage: 250 MG, WEEKLY
     Route: 048
     Dates: start: 20101201, end: 20110101
  4. TILCOTIL [Concomitant]
     Dosage: 20 MG, 1X/DAY
  5. INIPOMP [Concomitant]
     Dosage: 20 MG, 1X/DAY

REACTIONS (1)
  - PANCYTOPENIA [None]
